FAERS Safety Report 22106173 (Version 1)
Quarter: 2023Q1

REPORT INFORMATION
  Report Type: Spontaneous
  Country: FR (occurrence: FR)
  Receive Date: 20230317
  Receipt Date: 20230317
  Transmission Date: 20230418
  Serious: Yes (Other)
  Sender: FDA-Public Use
  Company Number: None

PATIENT
  Age: 55 Year
  Sex: Male
  Weight: 105 kg

DRUGS (7)
  1. CEFAZOLIN [Interacting]
     Active Substance: CEFAZOLIN
     Indication: Intervertebral discitis
     Dosage: 8 G, QD
     Route: 042
     Dates: start: 20230204, end: 20230222
  2. LOVENOX [Interacting]
     Active Substance: ENOXAPARIN SODIUM
     Indication: Pulmonary embolism
     Dosage: 20000 IU, QD
     Route: 058
     Dates: start: 20230213, end: 20230222
  3. KARDEGIC [Interacting]
     Active Substance: ASPIRIN DL-LYSINE
     Indication: Cardiovascular event prophylaxis
     Dosage: 1 DF, QD
     Route: 048
     Dates: start: 20230125
  4. DULOXETINE HYDROCHLORIDE [Interacting]
     Active Substance: DULOXETINE HYDROCHLORIDE
     Indication: Mixed anxiety and depressive disorder
     Dosage: 30 MG, QD
     Route: 048
     Dates: start: 20230209, end: 20230228
  5. GABAPENTIN [Concomitant]
     Active Substance: GABAPENTIN
     Dosage: 300 MG, QD
     Route: 048
  6. EZETIMIBE [Concomitant]
     Active Substance: EZETIMIBE
     Dosage: 10 MG, QD
     Route: 048
  7. LANSOPRAZOLE [Concomitant]
     Active Substance: LANSOPRAZOLE
     Dosage: 15 MG, QD
     Route: 048

REACTIONS (2)
  - Drug interaction [Recovered/Resolved]
  - Pelvic haematoma [Recovered/Resolved]

NARRATIVE: CASE EVENT DATE: 20230221
